FAERS Safety Report 6055099-6 (Version None)
Quarter: 2009Q1

REPORT INFORMATION
  Report Type: 
  Country: None (occurrence: None)
  Receive Date: 20090123
  Receipt Date: 20090111
  Transmission Date: 20090719
  Serious: Yes (Death)
  Sender: FDA-Public Use
  Company Number: 144243

PATIENT
  Age: 50 Year
  Sex: 0

DRUGS (13)
  1. VINCRISTINE SULPHATE INJECTION, USP (VINCRISTINE) [Suspect]
     Indication: HODGKIN'S DISEASE
  2. MECHLORETHAMINE [Suspect]
     Indication: HODGKIN'S DISEASE
  3. PROCARBAZINE [Suspect]
     Indication: HODGKIN'S DISEASE
  4. PREDNISONE [Suspect]
     Indication: HODGKIN'S DISEASE
  5. DOXORUBICIN HCL [Suspect]
     Indication: HODGKIN'S DISEASE
  6. BLEOMYCIN SULFATE [Suspect]
     Indication: HODGKIN'S DISEASE
  7. DACARBAZINE [Suspect]
     Indication: HODGKIN'S DISEASE
  8. MITOXANTRONE [Suspect]
     Indication: HODGKIN'S DISEASE
  9. MITOGUAZONE [Suspect]
     Indication: HODGKIN'S DISEASE
  10. VELBAN [Suspect]
     Indication: HODGKIN'S DISEASE
  11. CYCLOPHOSPHAMIDE [Suspect]
     Indication: HODGKIN'S DISEASE
  12. THERAPEUTIC RADIOPHARMACEUTICALS [Suspect]
     Indication: HODGKIN'S DISEASE
     Dosage: 20.0 GY
  13. ETOPOSIDE [Suspect]
     Indication: HODGKIN'S DISEASE

REACTIONS (3)
  - COLON CANCER [None]
  - METASTASIS [None]
  - STEM CELL TRANSPLANT [None]
